FAERS Safety Report 9051130 (Version 1)
Quarter: 2013Q1

REPORT INFORMATION
  Report Type: Spontaneous
  Country: US (occurrence: US)
  Receive Date: 20130206
  Receipt Date: 20130206
  Transmission Date: 20140127
  Serious: No
  Sender: FDA-Public Use
  Company Number: US-PFIZER INC-2013042226

PATIENT
  Age: 62 Year
  Sex: Male

DRUGS (1)
  1. VORICONAZOLE [Suspect]
     Indication: INFECTION
     Dosage: 200 MG, 2X/DAY
     Dates: start: 20090804

REACTIONS (1)
  - Alopecia [Unknown]
